FAERS Safety Report 5300026-X (Version None)
Quarter: 2007Q2

REPORT INFORMATION
  Report Type: 
  Country: None (occurrence: None)
  Receive Date: 20070410
  Receipt Date: 20070329
  Transmission Date: 20071010
  Serious: Yes (Hospitalization)
  Sender: FDA-Public Use
  Company Number: B0463158A

PATIENT
  Age: 13 Year
  Sex: Male
  Weight: 34.428 kg

DRUGS (1)
  1. RELENZA [Suspect]
     Indication: INFLUENZA
     Dosage: 10 MG / TWICE PER DAY / INHALED
     Route: 055
     Dates: start: 20070312, end: 20070316

REACTIONS (2)
  - ABNORMAL BEHAVIOUR [None]
  - VOMITING [None]
